FAERS Safety Report 4901646-4 (Version None)
Quarter: 2006Q1

REPORT INFORMATION
  Report Type: 
  Country: None (occurrence: None)
  Receive Date: 20060206
  Receipt Date: 20050816
  Transmission Date: 20060701
  Serious: Yes (Hospitalization)
  Sender: FDA-Public Use
  Company Number: US-BRISTOL-MYERS SQUIBB COMPANY-13079876

PATIENT
  Age: 61 Year
  Sex: Female
  Weight: 94 kg

DRUGS (9)
  1. TAXOL [Suspect]
     Indication: BREAST CANCER
     Route: 042
     Dates: start: 20050718, end: 20050718
  2. HERCEPTIN [Suspect]
     Indication: BREAST CANCER
     Dates: start: 20050718, end: 20050718
  3. KYTRIL [Concomitant]
     Indication: PREMEDICATION
  4. DECADRON PHOSPHATE [Concomitant]
     Indication: PREMEDICATION
  5. BENADRYL [Concomitant]
     Indication: PREMEDICATION
  6. ZANTAC [Concomitant]
     Indication: PREMEDICATION
  7. HYDROCODONE BITARTRATE [Concomitant]
  8. COUMADIN [Concomitant]
     Dates: start: 20050301
  9. COLACE [Concomitant]

REACTIONS (1)
  - PULMONARY FIBROSIS [None]
